FAERS Safety Report 16954389 (Version 1)
Quarter: 2019Q4

REPORT INFORMATION
  Report Type: Report from Study
  Country: AU (occurrence: AU)
  Receive Date: 20191023
  Receipt Date: 20191023
  Transmission Date: 20200122
  Serious: Yes (Life-Threatening, Hospitalization, Other)
  Sender: FDA-Public Use
  Company Number: AU-BRISTOL-MYERS SQUIBB COMPANY-BMS-2018-121799

PATIENT
  Age: 72 Year
  Sex: Male

DRUGS (11)
  1. IPILIMUMAB [Suspect]
     Active Substance: IPILIMUMAB
     Indication: PRODUCT USED FOR UNKNOWN INDICATION
     Dosage: 260 MILLIGRAM
     Route: 040
     Dates: start: 20181220, end: 20181220
  2. PARACETAMOL AND CODEINE PHOSPHATE (I) [Concomitant]
     Active Substance: ACETAMINOPHEN\CODEINE PHOSPHATE
     Indication: PRODUCT USED FOR UNKNOWN INDICATION
     Dosage: 500 MG, UNK
     Route: 048
     Dates: start: 20181122, end: 20181129
  3. OXYCODONE HYDROCHLORIDE. [Concomitant]
     Active Substance: OXYCODONE HYDROCHLORIDE
     Indication: PRODUCT USED FOR UNKNOWN INDICATION
     Dosage: 5 MG, UNK
     Route: 048
     Dates: start: 20181109
  4. OXYCODONE HYDROCHLORIDE. [Concomitant]
     Active Substance: OXYCODONE HYDROCHLORIDE
     Indication: PRODUCT USED FOR UNKNOWN INDICATION
     Dosage: 1 DF, UNK
     Route: 048
     Dates: start: 20181129
  5. SILVER SULFADIAZINE. [Concomitant]
     Active Substance: SILVER SULFADIAZINE
     Indication: PRODUCT USED FOR UNKNOWN INDICATION
     Dosage: 1 %, QD
     Route: 061
     Dates: start: 20181126
  6. IPILIMUMAB [Suspect]
     Active Substance: IPILIMUMAB
     Indication: MALIGNANT MELANOMA
     Dosage: 250 MILLIGRAM
     Route: 042
     Dates: start: 20181129
  7. IPILIMUMAB [Suspect]
     Active Substance: IPILIMUMAB
     Indication: PRODUCT USED FOR UNKNOWN INDICATION
     Dosage: 260 MILLIGRAM
     Route: 042
     Dates: start: 20190110, end: 20190110
  8. IPILIMUMAB [Suspect]
     Active Substance: IPILIMUMAB
     Indication: PRODUCT USED FOR UNKNOWN INDICATION
     Dosage: 260 MILLIGRAM
     Route: 042
     Dates: start: 20190131, end: 20190131
  9. PANADOL [Concomitant]
     Active Substance: ACETAMINOPHEN
     Indication: PRODUCT USED FOR UNKNOWN INDICATION
     Dosage: 1 DOSAGE FORM
     Route: 048
     Dates: start: 20180826
  10. ONDANSETRON HYDROCHLORIDE DIHYDRATE [Concomitant]
     Active Substance: ONDANSETRON HYDROCHLORIDE
     Indication: PRODUCT USED FOR UNKNOWN INDICATION
     Dosage: UNK, PRN
     Route: 048
     Dates: start: 20181220
  11. ENDONE [Concomitant]
     Active Substance: OXYCODONE HYDROCHLORIDE
     Indication: PRODUCT USED FOR UNKNOWN INDICATION
     Dosage: 5 MILLIGRAM
     Route: 048
     Dates: start: 20181109

REACTIONS (2)
  - Pyrexia [Recovered/Resolved]
  - Sepsis [Recovered/Resolved]

NARRATIVE: CASE EVENT DATE: 20181217
